FAERS Safety Report 5984018-3 (Version None)
Quarter: 2008Q4

REPORT INFORMATION
  Report Type: 
  Country: None (occurrence: None)
  Receive Date: 20081208
  Receipt Date: 20081128
  Transmission Date: 20090506
  Serious: Yes (Hospitalization)
  Sender: FDA-Public Use
  Company Number: CO-ELI_LILLY_AND_COMPANY-CO200811005216

PATIENT
  Age: 60 Year
  Sex: Female

DRUGS (14)
  1. FORTEO [Suspect]
     Indication: OSTEOPOROSIS
     Dosage: 20 UG, DAILY (1/D)
     Route: 065
     Dates: start: 20081108
  2. FORTEO [Suspect]
     Dosage: 20 UG, DAILY (1/D)
     Route: 065
  3. LOVASTATIN [Concomitant]
     Dosage: UNK, UNKNOWN
     Route: 065
  4. PREDNISOLONE [Concomitant]
     Dosage: UNK, UNKNOWN
     Route: 065
  5. METHOTREXATE [Concomitant]
     Dosage: UNK, UNKNOWN
     Route: 065
  6. ARAVA [Concomitant]
     Dosage: UNK, UNKNOWN
     Route: 065
  7. LOSARTAN POTASSIUM [Concomitant]
     Dosage: UNK, UNKNOWN
     Route: 065
  8. VERAPAMIL [Concomitant]
     Dosage: UNK, UNKNOWN
     Route: 065
  9. HYDROCHLORZIDE [Concomitant]
     Dosage: UNK, UNKNOWN
     Route: 065
  10. METOPROLOL TARTRATE [Concomitant]
     Dosage: UNK, UNKNOWN
     Route: 065
  11. OMEPRAZOLE [Concomitant]
     Dosage: UNK, UNKNOWN
     Route: 065
  12. NIMODIPINE [Concomitant]
     Dosage: UNK, UNKNOWN
     Route: 065
  13. VALPROIC ACID [Concomitant]
     Dosage: UNK, UNKNOWN
     Route: 065
  14. ACETAMINOPHEN [Concomitant]
     Dosage: UNK, UNKNOWN
     Route: 065

REACTIONS (2)
  - BRADYCARDIA [None]
  - CHEST PAIN [None]
